FAERS Safety Report 19224862 (Version 1)
Quarter: 2021Q2

REPORT INFORMATION
  Report Type: Spontaneous
  Country: US (occurrence: US)
  Receive Date: 20210505
  Receipt Date: 20210505
  Transmission Date: 20210717
  Serious: No
  Sender: FDA-Public Use
  Company Number: US-ROCHE-2758805

PATIENT
  Sex: Female

DRUGS (3)
  1. ESBRIET [Suspect]
     Active Substance: PIRFENIDONE
     Indication: IDIOPATHIC PULMONARY FIBROSIS
     Dosage: TAKE 1 TABLET BY MOUTH 3 TIMES A DAY WITH MEALS FOR 7 DAYS
     Route: 048
     Dates: start: 20200829
  2. ESBRIET [Suspect]
     Active Substance: PIRFENIDONE
     Dosage: THEN, TAKE 3 TABLET(S) BY MOUTH 3 TIMES A DAY WITH MEALS THEREAFTER
     Route: 048
  3. ESBRIET [Suspect]
     Active Substance: PIRFENIDONE
     Dosage: THEN, TAKE 2 TABLET(S) BY MOUTH 3 TIMES A DAY WITH MEALS FOR 7 DAYS
     Route: 048

REACTIONS (4)
  - Product dispensing error [Unknown]
  - No adverse event [Unknown]
  - Medication error [Unknown]
  - Product prescribing error [Unknown]
